FAERS Safety Report 5051636-9 (Version None)
Quarter: 2006Q3

REPORT INFORMATION
  Report Type: 
  Country: None (occurrence: None)
  Receive Date: 20060714
  Receipt Date: 20060710
  Transmission Date: 20061208
  Serious: Yes (Hospitalization)
  Sender: FDA-Public Use
  Company Number: BE-GLAXOSMITHKLINE-B0430893A

PATIENT
  Age: 68 Year
  Sex: Female

DRUGS (8)
  1. LAMOTRIGINE [Suspect]
     Indication: BIPOLAR DISORDER
  2. LORMETAZEPAM [Suspect]
  3. BISOPROLOL FUMARATE [Suspect]
  4. MIRTAZAPINE [Concomitant]
  5. FLUOXETINE [Concomitant]
  6. CANDESARTAN [Concomitant]
  7. HYDROCHLOROTHIAZIDE [Concomitant]
  8. ATORVASTATIN CALCIUM [Concomitant]

REACTIONS (4)
  - ATRIOVENTRICULAR BLOCK FIRST DEGREE [None]
  - BRADYCARDIA [None]
  - RENAL FAILURE [None]
  - SYNCOPE [None]
